FAERS Safety Report 21860926 (Version 1)
Quarter: 2023Q1

REPORT INFORMATION
  Report Type: Spontaneous
  Country: US (occurrence: None)
  Receive Date: 20230113
  Receipt Date: 20230113
  Transmission Date: 20230418
  Serious: Yes (Hospitalization)
  Sender: FDA-Public Use
  Company Number: None

PATIENT
  Sex: Male
  Weight: 105.2 kg

DRUGS (24)
  1. MAVYRET [Suspect]
     Active Substance: GLECAPREVIR\PIBRENTASVIR
     Indication: Hepatitis C
     Dosage: 3 TABLETS ONCE DAILY BY MOUTH?
     Route: 048
     Dates: start: 20190612, end: 20190801
  2. ASPIRIN [Concomitant]
     Active Substance: ASPIRIN
  3. paridex [Concomitant]
  4. DEXTROSE [Concomitant]
     Active Substance: DEXTROSE
  5. EPINEPHRINE [Concomitant]
     Active Substance: EPINEPHRINE
  6. VELETRI [Concomitant]
     Active Substance: EPOPROSTENOL
  7. FENTANYL [Concomitant]
     Active Substance: FENTANYL
  8. GLUCAGON [Concomitant]
     Active Substance: GLUCAGON
  9. HEPARIN [Concomitant]
     Active Substance: HEPARIN SODIUM
  10. HYDROCORTISONE SODIUM SUCCINATE [Concomitant]
     Active Substance: HYDROCORTISONE SODIUM SUCCINATE
  11. INSULIN ASPART [Concomitant]
     Active Substance: INSULIN ASPART
  12. LAMIVUDINE [Concomitant]
     Active Substance: LAMIVUDINE
  13. MAGNESIUM SULFATE [Concomitant]
     Active Substance: MAGNESIUM SULFATE
  14. MEROPENEM [Concomitant]
     Active Substance: MEROPENEM
  15. MICAFUNGIN [Concomitant]
     Active Substance: MICAFUNGIN
  16. NOREPINEPHRINE [Concomitant]
     Active Substance: NOREPINEPHRINE
  17. PANTOPRAZOLE [Concomitant]
     Active Substance: PANTOPRAZOLE
  18. PLASMA-LYTE A [Concomitant]
     Active Substance: MAGNESIUM CHLORIDE\POTASSIUM CHLORIDE\SODIUM ACETATE\SODIUM CHLORIDE\SODIUM GLUCONATE
  19. POTASSIUM CHLORIDE [Concomitant]
     Active Substance: POTASSIUM CHLORIDE
  20. PROPOFOL [Concomitant]
     Active Substance: PROPOFOL
  21. pureflow dialysate [Concomitant]
  22. SODIUM CHLORIDE [Concomitant]
     Active Substance: SODIUM CHLORIDE
  23. VALGANCICLOVIR [Concomitant]
     Active Substance: VALGANCICLOVIR
  24. VANCOMYCIN [Concomitant]
     Active Substance: VANCOMYCIN

REACTIONS (8)
  - Respiratory distress [None]
  - Septic shock [None]
  - Acute kidney injury [None]
  - Dialysis [None]
  - Lethargy [None]
  - Hypotension [None]
  - Tachypnoea [None]
  - Escherichia test positive [None]

NARRATIVE: CASE EVENT DATE: 20190621
